FAERS Safety Report 12070433 (Version 2)
Quarter: 2016Q1

REPORT INFORMATION
  Report Type: Spontaneous
  Country: BR (occurrence: PT)
  Receive Date: 20160211
  Receipt Date: 20160219
  Transmission Date: 20160526
  Serious: Yes (Other)
  Sender: FDA-Public Use
  Company Number: BR-BAYER-2016-022729

PATIENT
  Age: 33 Year
  Sex: Female

DRUGS (2)
  1. ASPIRINA [Suspect]
     Active Substance: ASPIRIN
     Dosage: 100 MG, QD
  2. TACROLIMUS. [Suspect]
     Active Substance: TACROLIMUS
     Indication: IMMUNOSUPPRESSION
     Dosage: 5 MG, UNK

REACTIONS (3)
  - Premature separation of placenta [None]
  - Maternal exposure during pregnancy [None]
  - Premature delivery [None]
